FAERS Safety Report 14552005 (Version 2)
Quarter: 2018Q1

REPORT INFORMATION
  Report Type: Spontaneous
  Country: US (occurrence: US)
  Receive Date: 20180220
  Receipt Date: 20180324
  Transmission Date: 20180509
  Serious: Yes (Other)
  Sender: FDA-Public Use
  Company Number: US-ACCORD-063425

PATIENT
  Age: 84 Year
  Sex: Female
  Weight: 61.23 kg

DRUGS (3)
  1. POTASSIUM [Suspect]
     Active Substance: POTASSIUM
     Indication: FLUID RETENTION
     Dosage: STRENGTH: 10 MEQ
     Route: 048
     Dates: start: 20170818, end: 20180127
  2. HYDROCHLOROTHIAZIDE. [Suspect]
     Active Substance: HYDROCHLOROTHIAZIDE
     Indication: FLUID RETENTION
     Dosage: 12.5 MG ONCE DAILY
     Route: 048
  3. ACETYLSALICYLIC ACID [Concomitant]
     Active Substance: ASPIRIN
     Dosage: STRENGTH: 81 MG
     Route: 048

REACTIONS (6)
  - Fatigue [Recovered/Resolved]
  - Muscle twitching [Recovering/Resolving]
  - Muscle spasms [Recovered/Resolved]
  - Restless legs syndrome [Recovering/Resolving]
  - Hypersomnia [Recovering/Resolving]
  - Hypersensitivity [Recovering/Resolving]
